FAERS Safety Report 25950410 (Version 1)
Quarter: 2025Q4

REPORT INFORMATION
  Report Type: Spontaneous
  Country: US (occurrence: US)
  Receive Date: 20251023
  Receipt Date: 20251023
  Transmission Date: 20260117
  Serious: No
  Sender: GILEAD
  Company Number: US-GILEAD-2025-0732880

PATIENT
  Age: 60 Year
  Sex: Female

DRUGS (2)
  1. LIVDELZI [Suspect]
     Active Substance: SELADELPAR LYSINE
     Indication: Product used for unknown indication
     Dosage: UNK
     Route: 065
  2. URSO [Concomitant]
     Active Substance: URSODIOL

REACTIONS (1)
  - Hepatic enzyme increased [Unknown]

NARRATIVE: CASE EVENT DATE: 20251014
